FAERS Safety Report 11246682 (Version 1)
Quarter: 2015Q3

REPORT INFORMATION
  Report Type: Spontaneous
  Country: IT (occurrence: IT)
  Receive Date: 20150708
  Receipt Date: 20150708
  Transmission Date: 20151125
  Serious: Yes (Other)
  Sender: FDA-Public Use
  Company Number: IT-HOSPIRA-2902159

PATIENT
  Age: 57 Year
  Sex: Female

DRUGS (4)
  1. ALOXI [Concomitant]
     Active Substance: PALONOSETRON HYDROCHLORIDE
     Indication: BLADDER ADENOCARCINOMA STAGE UNSPECIFIED
     Route: 042
     Dates: start: 20150325, end: 20150528
  2. GEMCITABINE [Suspect]
     Active Substance: GEMCITABINE\GEMCITABINE HYDROCHLORIDE
     Indication: BLADDER ADENOCARCINOMA STAGE UNSPECIFIED
     Dates: start: 20150325, end: 20150528
  3. CISPLATINO TEVA [Concomitant]
     Active Substance: CISPLATIN
     Indication: BLADDER ADENOCARCINOMA STAGE UNSPECIFIED
     Route: 040
     Dates: start: 20150325, end: 20150528
  4. TAD                                /00317401/ [Concomitant]
     Indication: BLADDER ADENOCARCINOMA STAGE UNSPECIFIED
     Route: 040
     Dates: start: 20150325, end: 20150528

REACTIONS (1)
  - Pain [Recovered/Resolved with Sequelae]

NARRATIVE: CASE EVENT DATE: 20150528
